FAERS Safety Report 21778519 (Version 1)
Quarter: 2022Q4

REPORT INFORMATION
  Report Type: Spontaneous
  Country: FR (occurrence: None)
  Receive Date: 20221226
  Receipt Date: 20221226
  Transmission Date: 20230113
  Serious: Yes (Other)
  Sender: FDA-Public Use
  Company Number: FR-ROCHE-3205624

PATIENT
  Age: 78 Year
  Sex: Male

DRUGS (3)
  1. TUCATINIB [Suspect]
     Active Substance: TUCATINIB
     Indication: Breast cancer male
     Route: 048
     Dates: start: 20220914
  2. XELODA [Suspect]
     Active Substance: CAPECITABINE
     Indication: Breast cancer male
     Route: 048
     Dates: start: 20220909
  3. XELODA [Suspect]
     Active Substance: CAPECITABINE
     Route: 048
     Dates: start: 20220909

REACTIONS (2)
  - Rash maculo-papular [Not Recovered/Not Resolved]
  - Hepatic cytolysis [Recovered/Resolved]

NARRATIVE: CASE EVENT DATE: 20220921
